FAERS Safety Report 22283593 (Version 3)
Quarter: 2023Q2

REPORT INFORMATION
  Report Type: Spontaneous
  Country: JP (occurrence: JP)
  Receive Date: 20230504
  Receipt Date: 20230622
  Transmission Date: 20230721
  Serious: Yes (Other)
  Sender: FDA-Public Use
  Company Number: JP-HBP-2023JP028795

PATIENT
  Age: 58 Year
  Sex: Female
  Weight: 46.9 kg

DRUGS (3)
  1. ALOXI [Suspect]
     Active Substance: PALONOSETRON HYDROCHLORIDE
     Indication: Antiemetic supportive care
     Dosage: 0.75 MILLIGRAM, 1 IN DAY 1
     Route: 041
     Dates: start: 20230221, end: 20230221
  2. FOSNETUPITANT CHLORIDE HYDROCHLORIDE [Suspect]
     Active Substance: FOSNETUPITANT CHLORIDE HYDROCHLORIDE
     Indication: Antiemetic supportive care
     Dosage: 235 MILLIGRAM, 1 IN 1 DAY
     Route: 041
     Dates: start: 20230221, end: 20230221
  3. DEXAMETHASONE SODIUM PHOSPHATE [Concomitant]
     Active Substance: DEXAMETHASONE SODIUM PHOSPHATE
     Indication: Antiemetic supportive care
     Dosage: 9.9 MILLIGRAM, SINGLE
     Route: 041
     Dates: start: 20230221, end: 20230221

REACTIONS (7)
  - Hypersensitivity [Recovered/Resolved]
  - Chest discomfort [Recovered/Resolved]
  - Hot flush [Recovered/Resolved]
  - Back pain [Recovered/Resolved]
  - Cough [Recovered/Resolved]
  - Blood pressure increased [Recovered/Resolved]
  - Oxygen saturation decreased [Recovered/Resolved]

NARRATIVE: CASE EVENT DATE: 20230221
